FAERS Safety Report 10494919 (Version 1)
Quarter: 2014Q4

REPORT INFORMATION
  Report Type: Spontaneous
  Country: BR (occurrence: BR)
  Receive Date: 20141003
  Receipt Date: 20141003
  Transmission Date: 20150528
  Serious: Yes (Other)
  Sender: FDA-Public Use
  Company Number: BR-BAYER-2014-143329

PATIENT
  Age: 20 Year
  Sex: Female

DRUGS (1)
  1. MAGNEVISTAN [Suspect]
     Active Substance: GADOPENTETATE DIMEGLUMINE
     Indication: INTRACRANIAL ANEURYSM
     Dosage: UNK
     Route: 042

REACTIONS (2)
  - Dysphagia [Recovering/Resolving]
  - Tongue oedema [Recovering/Resolving]

NARRATIVE: CASE EVENT DATE: 20140924
